FAERS Safety Report 5462978-7 (Version None)
Quarter: 2007Q3

REPORT INFORMATION
  Report Type: 
  Country: None (occurrence: None)
  Receive Date: 20070918
  Receipt Date: 20070918
  Transmission Date: 20080115
  Serious: Yes (Hospitalization)
  Sender: FDA-Public Use
  Company Number: None

PATIENT
  Sex: Female
  Weight: 52.7 kg

DRUGS (4)
  1. CISPLATIN [Suspect]
     Dosage: 76.5 MG
  2. DOXORUBICIN HYDROCHLORIDE [Suspect]
     Dosage: 68.8 MG
  3. G-CSF (FILGRASTIM, AMGEN) [Suspect]
     Dosage: 6 MG
  4. TAXOL [Suspect]
     Dosage: 244.8 MG

REACTIONS (9)
  - ABDOMINAL DISCOMFORT [None]
  - ABDOMINAL PAIN LOWER [None]
  - BACK PAIN [None]
  - BONE PAIN [None]
  - CONSTIPATION [None]
  - NAUSEA [None]
  - PAIN [None]
  - STATUS EPILEPTICUS [None]
  - VOMITING [None]
